FAERS Safety Report 23240077 (Version 2)
Quarter: 2024Q2

REPORT INFORMATION
  Report Type: Spontaneous
  Country: US (occurrence: US)
  Receive Date: 20231129
  Receipt Date: 20240514
  Transmission Date: 20240715
  Serious: No
  Sender: FDA-Public Use
  Company Number: US-PFIZER INC-202300400339

PATIENT
  Age: 63 Year
  Sex: Female
  Weight: 54.422 kg

DRUGS (2)
  1. NURTEC ODT [Suspect]
     Active Substance: RIMEGEPANT SULFATE
     Indication: Migraine
     Dosage: UNK, DAILY
     Dates: start: 20231122, end: 20231122
  2. ROSUVASTATIN [Concomitant]
     Active Substance: ROSUVASTATIN
     Indication: Blood cholesterol increased
     Dosage: 5 MG

REACTIONS (4)
  - Headache [Unknown]
  - Vomiting [Unknown]
  - Nausea [Unknown]
  - Head discomfort [Unknown]

NARRATIVE: CASE EVENT DATE: 20231122
